FAERS Safety Report 9064379 (Version 1)
Quarter: 2013Q1

REPORT INFORMATION
  Report Type: Spontaneous
  Country: US (occurrence: US)
  Receive Date: 20130213
  Receipt Date: 20130213
  Transmission Date: 20140127
  Serious: Yes (Other)
  Sender: FDA-Public Use
  Company Number: US-GILEAD-2011-0038983

PATIENT
  Sex: Female

DRUGS (10)
  1. LETAIRIS [Suspect]
     Indication: PULMONARY HYPERTENSION
     Route: 048
     Dates: start: 20110526
  2. LETAIRIS [Suspect]
     Route: 048
     Dates: start: 20110412, end: 20110413
  3. LETAIRIS [Suspect]
     Route: 048
     Dates: start: 20100527, end: 20110405
  4. LETAIRIS [Suspect]
     Route: 048
     Dates: start: 20100506, end: 20100527
  5. REVATIO [Concomitant]
  6. TYVASO [Concomitant]
  7. FLECAINIDE [Concomitant]
  8. FUROSEMIDE [Concomitant]
  9. SPIRONOLACTONE [Concomitant]
  10. OMEPRAZOLE [Concomitant]

REACTIONS (2)
  - Liver function test abnormal [Not Recovered/Not Resolved]
  - Fluid retention [Recovering/Resolving]
